FAERS Safety Report 26058090 (Version 1)
Quarter: 2025Q4

REPORT INFORMATION
  Report Type: Spontaneous
  Country: TR (occurrence: TR)
  Receive Date: 20251118
  Receipt Date: 20251118
  Transmission Date: 20260118
  Serious: Yes (Death)
  Sender: ALVOGEN
  Company Number: TR-ALVOGEN-2025099011

PATIENT
  Age: 19 Year
  Sex: Male
  Weight: 115 kg

DRUGS (2)
  1. PREGABALIN [Suspect]
     Active Substance: PREGABALIN
     Indication: Product used for unknown indication
  2. ALCOHOL [Suspect]
     Active Substance: ALCOHOL
     Indication: Product used for unknown indication

REACTIONS (6)
  - Haemorrhage [Fatal]
  - Cardiac tamponade [Fatal]
  - Myocardial rupture [Fatal]
  - Road traffic accident [Fatal]
  - Sedation [Fatal]
  - Intentional product misuse [Unknown]
